FAERS Safety Report 14669371 (Version 1)
Quarter: 2018Q1

REPORT INFORMATION
  Report Type: Spontaneous
  Country: US (occurrence: US)
  Receive Date: 20180321
  Receipt Date: 20180321
  Transmission Date: 20180509
  Serious: Yes (Hospitalization)
  Sender: FDA-Public Use
  Company Number: None

PATIENT
  Age: 69 Year
  Sex: Female

DRUGS (7)
  1. FOLIC ACID. [Concomitant]
     Active Substance: FOLIC ACID
  2. ENBREL [Suspect]
     Active Substance: ETANERCEPT
     Indication: RHEUMATOID ARTHRITIS
     Dosage: ONE PEN ONCE A WEEK SUBCUTANEOUS
     Route: 058
     Dates: start: 20150223
  3. LOTREL [Concomitant]
     Active Substance: AMLODIPINE BESYLATE\BENAZEPRIL HYDROCHLORIDE
  4. METHOTREXATE. [Concomitant]
     Active Substance: METHOTREXATE
  5. NASONEX [Concomitant]
     Active Substance: MOMETASONE FUROATE
  6. CALCIUM [Concomitant]
     Active Substance: CALCIUM
  7. MULTI-VITAMIN [Concomitant]
     Active Substance: .ALPHA.-TOCOPHEROL ACETATE, DL-\ASCORBIC ACID\CYANOCOBALAMIN\FLUORIDE ION\FOLIC ACID\NIACIN\PYRIDOXINE\RIBOFLAVIN\THIAMINE\VITAMIN A\VITAMIN D

REACTIONS (3)
  - Gastric disorder [None]
  - Ulcer haemorrhage [None]
  - Osteoarthritis [None]
